FAERS Safety Report 7310796-7 (Version None)
Quarter: 2011Q1

REPORT INFORMATION
  Report Type: 
  Country: None (occurrence: None)
  Receive Date: 20110224
  Receipt Date: 20110217
  Transmission Date: 20110831
  Serious: Yes (Other)
  Sender: FDA-Public Use
  Company Number: CA-ABBOTT-11P-028-0705719-00

PATIENT
  Age: 54 Year
  Sex: Male

DRUGS (9)
  1. RITONAVIR [Suspect]
     Indication: HIV INFECTION
  2. VORICONAZOLE [Interacting]
     Indication: ASPERGILLOSIS
     Route: 042
  3. CASPOFUNGIN [Concomitant]
     Indication: ASPERGILLOSIS
     Route: 042
  4. ABACAVIR [Concomitant]
     Indication: HIV INFECTION
     Dosage: UNKNOWN
  5. VORICONAZOLE [Interacting]
     Route: 048
  6. LAMIVUDINE [Concomitant]
     Indication: HIV INFECTION
     Dosage: UNKNOWN
  7. EMTRICITABINE W/TENOFOVIR [Concomitant]
     Indication: HIV INFECTION
     Dosage: 300/200 MG DAILY
  8. ETRAVIRINE [Interacting]
     Indication: HIV INFECTION
  9. DARUNAVIR ETHANOLATE [Interacting]
     Indication: HIV INFECTION

REACTIONS (3)
  - DRUG LEVEL INCREASED [None]
  - DRUG LEVEL DECREASED [None]
  - DRUG INTERACTION [None]
